FAERS Safety Report 9641395 (Version 1)
Quarter: 2013Q4

REPORT INFORMATION
  Report Type: Report from Study
  Country: US (occurrence: US)
  Receive Date: 20131023
  Receipt Date: 20131023
  Transmission Date: 20140711
  Serious: No
  Sender: FDA-Public Use
  Company Number: US-ABBVIE-13P-163-1030131-00

PATIENT
  Age: 54 Year
  Sex: Female

DRUGS (1)
  1. LUPRON DEPOT [Suspect]
     Indication: UTERINE LEIOMYOMA
     Dates: start: 20121211

REACTIONS (6)
  - Insomnia [Unknown]
  - Middle insomnia [Unknown]
  - Malaise [Unknown]
  - Headache [Unknown]
  - Palpitations [Unknown]
  - Vaginal haemorrhage [Unknown]
